FAERS Safety Report 6470944-8 (Version None)
Quarter: 2009Q4

REPORT INFORMATION
  Report Type: 
  Country: None (occurrence: None)
  Receive Date: 20091203
  Receipt Date: 20080219
  Transmission Date: 20100525
  Serious: Yes (Hospitalization, Other)
  Sender: FDA-Public Use
  Company Number: CA-ELI_LILLY_AND_COMPANY-CA200801001916

PATIENT
  Sex: Female

DRUGS (7)
  1. FORTEO [Suspect]
     Indication: OSTEOPOROSIS
     Dosage: 20 UG, DAILY (1/D)
     Route: 058
     Dates: start: 20070109, end: 20071201
  2. ARTHROTEC [Concomitant]
  3. BISOPROLOL [Concomitant]
  4. ALTACE [Concomitant]
  5. NITROGLYCERIN [Concomitant]
  6. HYDROMORPHONE HCL [Concomitant]
  7. CALCIUM WITH VITAMIN D /00944201/ [Concomitant]

REACTIONS (4)
  - ABDOMINAL HERNIA [None]
  - INCISION SITE HAEMORRHAGE [None]
  - MALAISE [None]
  - PYREXIA [None]
